FAERS Safety Report 20090283 (Version 1)
Quarter: 2021Q4

REPORT INFORMATION
  Report Type: Report from Study
  Country: DE (occurrence: None)
  Receive Date: 20211119
  Receipt Date: 20211119
  Transmission Date: 20220304
  Serious: Yes (Death, Hospitalization)
  Sender: FDA-Public Use
  Company Number: DE-ROCHE-2701837

PATIENT
  Age: 58 Year
  Sex: Male

DRUGS (7)
  1. ATEZOLIZUMAB [Suspect]
     Active Substance: ATEZOLIZUMAB
     Indication: Metastases to central nervous system
     Dosage: MOST RECENT DOSE PRIOR TO SAE ON 15/SEP/2020
     Route: 042
     Dates: start: 20200430, end: 20200915
  2. CARBOPLATIN [Suspect]
     Active Substance: CARBOPLATIN
     Indication: Metastases to central nervous system
     Dosage: AUC OF 5 MG/ML/MIN ON DAY 1 OF EACH CYCLE FOR 4 CYCLES
     Route: 042
     Dates: start: 20200430, end: 20200707
  3. ETOPOSIDE [Suspect]
     Active Substance: ETOPOSIDE
     Indication: Metastases to central nervous system
     Dosage: ON DAY 1 THROUGH 3 OF EACH CYCLE. ON DAYS 2 AND 3, PATIENTS WILL RECEIVE ETOPOSIDE ALONE.
     Route: 042
     Dates: start: 20200430, end: 20200709
  4. MST (GERMANY) [Concomitant]
     Indication: Pain
     Dates: start: 202004
  5. AMITRIPTYLINE [Concomitant]
     Active Substance: AMITRIPTYLINE
     Indication: Anxiety
     Dates: start: 202004
  6. BECLOMETHASONE DIPROPIONATE\FORMOTEROL FUMARATE\GLYCOPYRROLATE [Concomitant]
     Active Substance: BECLOMETHASONE DIPROPIONATE\FORMOTEROL FUMARATE\GLYCOPYRROLATE
     Indication: Chronic obstructive pulmonary disease
     Dates: start: 202004
  7. CAPROS [Concomitant]
     Indication: Pain
     Dates: start: 202004

REACTIONS (1)
  - Pneumonia [Fatal]

NARRATIVE: CASE EVENT DATE: 20200928
